FAERS Safety Report 7134901-0 (Version None)
Quarter: 2010Q4

REPORT INFORMATION
  Report Type: 
  Country: None (occurrence: None)
  Receive Date: 20101129
  Receipt Date: 20101129
  Transmission Date: 20110411
  Serious: Yes (Other)
  Sender: FDA-Public Use
  Company Number: None

PATIENT
  Age: 52 Year
  Sex: Female
  Weight: 107.5025 kg

DRUGS (1)
  1. OXYCONTIN [Suspect]
     Indication: PAIN
     Dosage: 1 20 MG 3 TIMES PER DAY PO
     Route: 048

REACTIONS (6)
  - DRUG INEFFECTIVE [None]
  - EYE SWELLING [None]
  - NAUSEA [None]
  - PRODUCT FORMULATION ISSUE [None]
  - PRURITUS [None]
  - URTICARIA [None]
